FAERS Safety Report 6425242-5 (Version None)
Quarter: 2009Q4

REPORT INFORMATION
  Report Type: 
  Country: None (occurrence: None)
  Receive Date: 20091103
  Receipt Date: 20091029
  Transmission Date: 20100525
  Serious: Yes (Other)
  Sender: FDA-Public Use
  Company Number: BR-BRISTOL-MYERS SQUIBB COMPANY-14837272

PATIENT
  Age: 56 Year
  Sex: Female

DRUGS (4)
  1. ORENCIA [Suspect]
     Indication: RHEUMATOID ARTHRITIS
     Route: 042
     Dates: start: 20090101, end: 20090101
  2. METHOTREXATE [Suspect]
  3. INFLIXIMAB [Concomitant]
  4. ENBREL [Concomitant]

REACTIONS (1)
  - AUTOIMMUNE HEPATITIS [None]
